FAERS Safety Report 5382740-3 (Version None)
Quarter: 2007Q2

REPORT INFORMATION
  Report Type: 
  Country: None (occurrence: None)
  Receive Date: 20070629
  Receipt Date: 20070105
  Transmission Date: 20071010
  Serious: Yes (Hospitalization, Disabling, Other)
  Sender: FDA-Public Use
  Company Number: US200701001158

PATIENT
  Age: 58 Year
  Sex: Male

DRUGS (2)
  1. HUMALOG PEN [Suspect]
     Indication: DIABETES MELLITUS
     Dosage: 35 U PREMEAL
     Dates: start: 19920101
  2. HUMALOG PEN (HUMALOG PEN) [Concomitant]

REACTIONS (6)
  - LIMB INJURY [None]
  - LOCALISED INFECTION [None]
  - MUSCLE ATROPHY [None]
  - MYOCARDIAL INFARCTION [None]
  - RENAL FAILURE [None]
  - SKIN LACERATION [None]
